FAERS Safety Report 24025834 (Version 2)
Quarter: 2024Q2

REPORT INFORMATION
  Report Type: Report from Study
  Country: TR (occurrence: TR)
  Receive Date: 20240628
  Receipt Date: 20240628
  Transmission Date: 20240716
  Serious: No
  Sender: FDA-Public Use
  Company Number: TR-ROCHE-3247658

PATIENT
  Age: 35 Year
  Sex: Male
  Weight: 88.0 kg

DRUGS (7)
  1. ALECTINIB [Suspect]
     Active Substance: ALECTINIB
     Indication: Lung cancer metastatic
     Route: 048
     Dates: start: 20211227
  2. ALECTINIB [Suspect]
     Active Substance: ALECTINIB
     Route: 048
     Dates: start: 20211228
  3. LORLATINIB [Concomitant]
     Active Substance: LORLATINIB
     Dates: start: 20221220, end: 20221220
  4. PIRACETAM [Concomitant]
     Active Substance: PIRACETAM
     Indication: Dizziness
     Route: 048
     Dates: start: 20221201
  5. PIRACETAM [Concomitant]
     Active Substance: PIRACETAM
     Route: 048
     Dates: start: 20221215
  6. DRAMAMINE [Concomitant]
     Active Substance: DIMENHYDRINATE
     Indication: Nausea
     Dosage: AS REQUIRED.
     Route: 048
     Dates: start: 20221201
  7. VASOSERC [Concomitant]
     Indication: Dizziness
     Route: 048
     Dates: start: 20221201

REACTIONS (2)
  - Headache [Not Recovered/Not Resolved]
  - Cognitive disorder [Not Recovered/Not Resolved]

NARRATIVE: CASE EVENT DATE: 20221115
